FAERS Safety Report 8544048-4 (Version None)
Quarter: 2012Q3

REPORT INFORMATION
  Report Type: 
  Country: None (occurrence: None)
  Receive Date: 20120727
  Receipt Date: 20120718
  Transmission Date: 20120928
  Serious: Yes (Hospitalization)
  Sender: FDA-Public Use
  Company Number: JP-AMGEN-JPNCT2012044401

PATIENT
  Age: 78 Year
  Sex: Male
  Weight: 54 kg

DRUGS (4)
  1. ISOVORIN [Concomitant]
     Indication: COLORECTAL CANCER
     Dosage: 250 MG, Q4WK
     Route: 041
     Dates: start: 20111122, end: 20120614
  2. FLUOROURACIL [Concomitant]
     Indication: COLORECTAL CANCER
     Dosage: 500 MG, Q4WK
     Route: 041
     Dates: start: 20111122, end: 20120614
  3. PANITUMUMAB [Suspect]
     Indication: COLORECTAL CANCER METASTATIC
     Dosage: 300 MG, Q2WK
     Route: 041
     Dates: start: 20111122, end: 20120628
  4. OXALIPLATIN [Concomitant]
     Indication: COLORECTAL CANCER
     Dosage: 100 MG, Q4WK
     Route: 041
     Dates: start: 20111122, end: 20120614

REACTIONS (3)
  - MALAISE [None]
  - INTERSTITIAL LUNG DISEASE [None]
  - DECREASED APPETITE [None]
